FAERS Safety Report 19502684 (Version 1)
Quarter: 2021Q3

REPORT INFORMATION
  Report Type: Spontaneous
  Country: US (occurrence: US)
  Receive Date: 20210707
  Receipt Date: 20210707
  Transmission Date: 20211014
  Serious: Yes (Death, Life-Threatening)
  Sender: FDA-Public Use
  Company Number: US-PFIZER INC-2021756942

PATIENT
  Age: 64 Year
  Sex: Male

DRUGS (4)
  1. CYCLOPHOSPHAMIDE. [Suspect]
     Active Substance: CYCLOPHOSPHAMIDE
     Indication: DIFFUSE ALVEOLAR DAMAGE
     Dosage: 2 MG/KG
  2. METHYLPREDNISOLONE. [Suspect]
     Active Substance: METHYLPREDNISOLONE
     Dosage: 1 MG/KG, DAILY
  3. METHYLPREDNISOLONE. [Suspect]
     Active Substance: METHYLPREDNISOLONE
     Indication: DIFFUSE ALVEOLAR DAMAGE
     Dosage: 1 G, DAILY FOR 3 DAYS
  4. RITUXIMAB. [Suspect]
     Active Substance: RITUXIMAB
     Indication: DIFFUSE ALVEOLAR DAMAGE
     Dosage: UNK

REACTIONS (4)
  - Drug ineffective [Fatal]
  - Hypoxia [Fatal]
  - Hypercapnia [Fatal]
  - Pulmonary haemorrhage [Fatal]
